FAERS Safety Report 5204815-1 (Version None)
Quarter: 2007Q1

REPORT INFORMATION
  Report Type: 
  Country: None (occurrence: None)
  Receive Date: 20070110
  Receipt Date: 20060725
  Transmission Date: 20070707
  Serious: No
  Sender: FDA-Public Use
  Company Number: US-BRISTOL-MYERS SQUIBB COMPANY-13453618

PATIENT
  Age: 30 Year
  Sex: Female
  Weight: 80 kg

DRUGS (2)
  1. ABILIFY [Suspect]
     Indication: BIPOLAR DISORDER
     Dates: start: 20060714, end: 20060721
  2. ALBUTEROL [Concomitant]
     Indication: ASTHMA

REACTIONS (5)
  - INSOMNIA [None]
  - NAUSEA [None]
  - NERVOUSNESS [None]
  - VERTIGO [None]
  - VOMITING [None]
